FAERS Safety Report 4966740-0 (Version None)
Quarter: 2006Q2

REPORT INFORMATION
  Report Type: 
  Country: None (occurrence: None)
  Receive Date: 20060407
  Receipt Date: 20050930
  Transmission Date: 20061013
  Serious: Yes (Disabling, Other)
  Sender: FDA-Public Use
  Company Number: US-MERCK-0510USA01485

PATIENT
  Age: 42 Year
  Sex: Female
  Weight: 61 kg

DRUGS (2)
  1. VIOXX [Suspect]
     Indication: ARTHRITIS
     Route: 048
     Dates: start: 19990101, end: 20010101
  2. VIOXX [Suspect]
     Route: 048
     Dates: start: 19990101, end: 20010101

REACTIONS (4)
  - CARDIAC FAILURE [None]
  - MYOCARDIAL INFARCTION [None]
  - PAIN [None]
  - STRESS [None]
